FAERS Safety Report 6122243-1 (Version None)
Quarter: 2009Q1

REPORT INFORMATION
  Report Type: 
  Country: None (occurrence: None)
  Receive Date: 20090316
  Receipt Date: 20090226
  Transmission Date: 20090719
  Serious: Yes (Death)
  Sender: FDA-Public Use
  Company Number: DIAT-67

PATIENT
  Age: 63 Year
  Sex: Male

DRUGS (2)
  1. DAUNORUBICIN HCL [Suspect]
     Indication: CHEMOTHERAPY
     Dosage: 50 MG/M2 QD IV
     Route: 042
     Dates: start: 20071102, end: 20071211
  2. MYLOTARG [Suspect]
     Indication: CHEMOTHERAPY
     Dosage: 3 MG/M2 Q2HR IV
     Route: 042
     Dates: start: 20071102, end: 20071211

REACTIONS (1)
  - LEUKAEMIA [None]
